FAERS Safety Report 7760384-3 (Version None)
Quarter: 2011Q3

REPORT INFORMATION
  Report Type: 
  Country: None (occurrence: None)
  Receive Date: 20110919
  Receipt Date: 20110912
  Transmission Date: 20111222
  Serious: Yes (Hospitalization, Disabling)
  Sender: FDA-Public Use
  Company Number: PHHY2011VE81992

PATIENT
  Sex: Female

DRUGS (1)
  1. EXELON [Suspect]
     Dosage: UNK UKN, UNK
     Dates: start: 20100103

REACTIONS (4)
  - CELLULITIS [None]
  - INFLAMMATION [None]
  - ABASIA [None]
  - NERVOUS SYSTEM DISORDER [None]
